FAERS Safety Report 9709306 (Version 2)
Quarter: 2014Q1

REPORT INFORMATION
  Report Type: Spontaneous
  Country: US (occurrence: US)
  Receive Date: 20131125
  Receipt Date: 20140127
  Transmission Date: 20141002
  Serious: Yes (Death, Other)
  Sender: FDA-Public Use
  Company Number: US-GILEAD-2013-0088473

PATIENT
  Sex: Female

DRUGS (10)
  1. LETAIRIS [Suspect]
     Indication: PULMONARY HYPERTENSION
     Dosage: 10 MG, QD
     Route: 048
     Dates: start: 20090709, end: 20131115
  2. LETAIRIS [Suspect]
     Indication: CONNECTIVE TISSUE DISORDER
  3. TYVASO [Concomitant]
  4. DIGOXIN [Concomitant]
  5. SYNTHROID [Concomitant]
  6. METOPROLOL [Concomitant]
  7. OMEPRAZOLE [Concomitant]
  8. KCL [Concomitant]
  9. TORSEMIDE [Concomitant]
  10. METOLAZONE [Concomitant]

REACTIONS (1)
  - Cardiac disorder [Fatal]
